FAERS Safety Report 26161115 (Version 1)
Quarter: 2025Q4

REPORT INFORMATION
  Report Type: Spontaneous
  Country: EU (occurrence: EU)
  Receive Date: 20251216
  Receipt Date: 20251216
  Transmission Date: 20260118
  Serious: Yes (Other)
  Sender: RECORDATI
  Company Number: EU-ORPHANEU-2025009023

PATIENT
  Sex: Male

DRUGS (1)
  1. ENJAYMO [Suspect]
     Active Substance: SUTIMLIMAB-JOME
     Indication: Product used for unknown indication
     Dosage: UNK

REACTIONS (2)
  - Neutropenia [Recovered/Resolved]
  - Cytomegalovirus infection [Unknown]
